FAERS Safety Report 20709569 (Version 3)
Quarter: 2022Q2

REPORT INFORMATION
  Report Type: Spontaneous
  Country: US (occurrence: None)
  Receive Date: 20220414
  Receipt Date: 20220509
  Transmission Date: 20220721
  Serious: Yes (Hospitalization)
  Sender: FDA-Public Use
  Company Number: US-ROCHE-3072869

PATIENT
  Age: 70 Year
  Sex: Female

DRUGS (15)
  1. PEGASYS [Suspect]
     Active Substance: PEGINTERFERON ALFA-2A
     Indication: Eosinophilia
     Route: 058
     Dates: start: 20210922, end: 20211021
  2. PEGASYS [Suspect]
     Active Substance: PEGINTERFERON ALFA-2A
     Route: 058
     Dates: start: 20211022, end: 20211121
  3. PEGASYS [Suspect]
     Active Substance: PEGINTERFERON ALFA-2A
     Route: 058
     Dates: start: 20211122, end: 20211221
  4. PEGASYS [Suspect]
     Active Substance: PEGINTERFERON ALFA-2A
     Route: 058
     Dates: start: 20211222
  5. FAMOTIDINE [Concomitant]
     Active Substance: FAMOTIDINE
  6. FERRALET [FERROUS GLUCONATE] [Concomitant]
  7. ONDANSETRON [Concomitant]
     Active Substance: ONDANSETRON
  8. MINERALS\VITAMINS [Concomitant]
     Active Substance: MINERALS\VITAMINS
  9. PROBIOTICS NOS [Concomitant]
     Active Substance: PROBIOTICS NOS
  10. VITAMIN D3 [Concomitant]
     Active Substance: CHOLECALCIFEROL
  11. VITAMIN C [Concomitant]
     Active Substance: ASCORBIC ACID
  12. BALSALAZIDE [Concomitant]
     Active Substance: BALSALAZIDE
  13. MIRTAZAPINE [Concomitant]
     Active Substance: MIRTAZAPINE
  14. BIOTIN [Concomitant]
     Active Substance: BIOTIN
  15. METOPROLOL TARTRATE [Concomitant]
     Active Substance: METOPROLOL TARTRATE

REACTIONS (11)
  - Acute left ventricular failure [Not Recovered/Not Resolved]
  - Congestive cardiomyopathy [Not Recovered/Not Resolved]
  - Heparin-induced thrombocytopenia [Unknown]
  - Deep vein thrombosis [Unknown]
  - Staphylococcal sepsis [Unknown]
  - Hypertension [Not Recovered/Not Resolved]
  - Memory impairment [Not Recovered/Not Resolved]
  - Off label use [Unknown]
  - Left ventricular failure [Not Recovered/Not Resolved]
  - Pleural effusion [Unknown]
  - Abdominal pain [Unknown]

NARRATIVE: CASE EVENT DATE: 20211001
